FAERS Safety Report 14060508 (Version 3)
Quarter: 2017Q4

REPORT INFORMATION
  Report Type: Spontaneous
  Country: FR (occurrence: FR)
  Receive Date: 20171006
  Receipt Date: 20171228
  Transmission Date: 20180321
  Serious: Yes (Hospitalization)
  Sender: FDA-Public Use
  Company Number: FR-009507513-1710FRA001260

PATIENT
  Age: 66 Year
  Sex: Male
  Weight: 61 kg

DRUGS (3)
  1. GENTAMICINE [Suspect]
     Active Substance: GENTAMICIN
     Indication: BACTERAEMIA
     Dosage: 180 MG, QD
     Route: 042
     Dates: start: 20170823, end: 20170914
  2. IMIPENEM AND CILASTATIN [Suspect]
     Active Substance: CILASTATIN SODIUM\IMIPENEM
     Indication: BACTERAEMIA
     Dosage: 2000MG
     Route: 041
     Dates: start: 20170904, end: 20170918
  3. PNEUMO 23 [Suspect]
     Active Substance: PNEUMOCOCCAL VACCINE, POLYVALENT 23
     Indication: IMMUNISATION
     Dates: start: 20170912

REACTIONS (2)
  - Vascular purpura [Recovered/Resolved]
  - Renal failure [Recovered/Resolved]

NARRATIVE: CASE EVENT DATE: 20170918
